FAERS Safety Report 8965651 (Version 2)
Quarter: 2012Q4

REPORT INFORMATION
  Report Type: Spontaneous
  Country: FR (occurrence: None)
  Receive Date: 20121205
  Receipt Date: 20121227
  Transmission Date: 20130627
  Serious: Yes (Life-Threatening)
  Sender: FDA-Public Use
  Company Number: FK201203382

PATIENT
  Age: 30 Year
  Sex: Female

DRUGS (4)
  1. VOLUVEN [Suspect]
     Indication: PRODUCT USED FOR UNKNOWN INDICATION
     Dosage: (not otherwise specified)
     Route: 042
  2. ROCURONIUM [Suspect]
     Indication: PRODUCT USED FOR UNKNOWN INDICATION
  3. PROPOFOL [Suspect]
     Indication: PRODUCT USED FOR UNKNOWN INDICATION
     Dosage: (not otherwise specified)
     Route: 042
     Dates: start: 20121024, end: 20121024
  4. CEFOXITIN SODIUM [Suspect]
     Indication: PRODUCT USED FOR UNKNOWN INDICATION
     Dosage: (not otherwise specified)
     Route: 042
     Dates: start: 20121024, end: 20121024

REACTIONS (3)
  - Dyspnoea [None]
  - Hypotension [None]
  - Anaphylactic shock [None]
